FAERS Safety Report 11501564 (Version 1)
Quarter: 2015Q3

REPORT INFORMATION
  Report Type: Spontaneous
  Country: US (occurrence: US)
  Receive Date: 20150914
  Receipt Date: 20150914
  Transmission Date: 20151125
  Serious: Yes (Hospitalization, Other)
  Sender: FDA-Public Use
  Company Number: PHHY2015US100986

PATIENT
  Age: 35 Year
  Sex: Male

DRUGS (12)
  1. CYMBALTA [Suspect]
     Active Substance: DULOXETINE HYDROCHLORIDE
     Indication: PRODUCT USED FOR UNKNOWN INDICATION
     Route: 065
  2. LIORESAL [Suspect]
     Active Substance: BACLOFEN
     Indication: PRODUCT USED FOR UNKNOWN INDICATION
     Dosage: 369.2 UG, QD
     Route: 037
     Dates: start: 20150716
  3. ADDERALL [Suspect]
     Active Substance: AMPHETAMINE ASPARTATE\AMPHETAMINE SULFATE\DEXTROAMPHETAMINE SACCHARATE\DEXTROAMPHETAMINE SULFATE
     Indication: PRODUCT USED FOR UNKNOWN INDICATION
     Route: 065
  4. LIORESAL [Suspect]
     Active Substance: BACLOFEN
     Dosage: 370 UG, QD
     Route: 037
  5. BACLOFEN INTRATHECAL [Suspect]
     Active Substance: BACLOFEN
     Indication: MULTIPLE SCLEROSIS
  6. LIORESAL [Suspect]
     Active Substance: BACLOFEN
     Dosage: 300 UG, QD (DECREASED 20 PERCENTAGE)
     Route: 037
  7. BACLOFEN INTRATHECAL [Suspect]
     Active Substance: BACLOFEN
     Indication: MUSCLE SPASTICITY
     Dosage: UNK
     Route: 037
     Dates: start: 2010
  8. BACLOFEN. [Suspect]
     Active Substance: BACLOFEN
     Indication: PRODUCT USED FOR UNKNOWN INDICATION
     Route: 048
  9. VALIUM [Suspect]
     Active Substance: DIAZEPAM
     Indication: PRODUCT USED FOR UNKNOWN INDICATION
     Route: 065
  10. LIORESAL [Suspect]
     Active Substance: BACLOFEN
     Dosage: 406 UG, QD (PUMP RATE WAS INCREASED BY 10 PERCENT )
     Route: 037
  11. LIORESAL [Suspect]
     Active Substance: BACLOFEN
     Dosage: 270 UG, QD
     Route: 037
  12. GABAPENTIN. [Suspect]
     Active Substance: GABAPENTIN
     Indication: PRODUCT USED FOR UNKNOWN INDICATION
     Route: 065

REACTIONS (12)
  - Muscle spasms [Recovering/Resolving]
  - Asthenia [Recovering/Resolving]
  - Formication [Recovering/Resolving]
  - Muscle spasticity [Recovering/Resolving]
  - Hyperaesthesia [Recovering/Resolving]
  - Muscle tightness [Recovering/Resolving]
  - Pruritus [Recovering/Resolving]
  - Tremor [Recovering/Resolving]
  - Vomiting [Recovering/Resolving]
  - Therapeutic response unexpected [Recovering/Resolving]
  - Hyperhidrosis [Recovering/Resolving]
  - Nausea [Recovering/Resolving]

NARRATIVE: CASE EVENT DATE: 20150807
